FAERS Safety Report 9101328 (Version 1)
Quarter: 2013Q1

REPORT INFORMATION
  Report Type: Spontaneous
  Country: US (occurrence: US)
  Receive Date: 20130218
  Receipt Date: 20130218
  Transmission Date: 20140127
  Serious: Yes (Death)
  Sender: FDA-Public Use
  Company Number: US-COVIDIEN/TYCO HEALTHCARE/MALLINCKRODT-T201300665

PATIENT
  Age: 47 Year
  Sex: Female

DRUGS (3)
  1. PAMELOR [Suspect]
     Route: 048
  2. CITALOPRAM [Suspect]
     Route: 048
  3. MORPHINE [Suspect]
     Route: 048

REACTIONS (1)
  - Drug abuse [Fatal]
